FAERS Safety Report 8536828-6 (Version None)
Quarter: 2012Q3

REPORT INFORMATION
  Report Type: 
  Country: None (occurrence: None)
  Receive Date: 20120725
  Receipt Date: 20120719
  Transmission Date: 20120928
  Serious: Yes (Death, Other)
  Sender: FDA-Public Use
  Company Number: JP-ELI_LILLY_AND_COMPANY-JP201207001187

PATIENT
  Age: 47 Year
  Sex: Male

DRUGS (6)
  1. GLYMESASON                         /00016001/ [Concomitant]
     Indication: PSORIASIS
     Dosage: UNK
     Dates: start: 20120607
  2. ZOLPIDEM [Concomitant]
     Indication: INSOMNIA
     Dosage: 5 MG, UNK
     Dates: start: 20111031
  3. LEVEMIR [Concomitant]
     Indication: TYPE 2 DIABETES MELLITUS
     Dosage: 4 DF, UNK, ASCENDING DOSE TO 16 UNITS
     Dates: start: 20091031
  4. HUMALOG MIX 75/25 [Suspect]
     Indication: TYPE 2 DIABETES MELLITUS
     Dosage: 6 DF, UNK, ASCENDING DOSE TO 38 UNITS
     Route: 058
     Dates: start: 20091001
  5. NEORAL [Concomitant]
     Indication: PSORIASIS
     Dosage: UNK
     Dates: start: 20111031, end: 20120609
  6. TIGASON [Concomitant]
     Indication: PSORIASIS
     Dosage: UNK
     Dates: start: 20091018, end: 20101128

REACTIONS (3)
  - INAPPROPRIATE SCHEDULE OF DRUG ADMINISTRATION [None]
  - DEATH [None]
  - HYPOGLYCAEMIA [None]
